FAERS Safety Report 9318903 (Version 6)
Quarter: 2015Q2

REPORT INFORMATION
  Report Type: Report from Study
  Country: JP (occurrence: JP)
  Receive Date: 20130530
  Receipt Date: 20150413
  Transmission Date: 20150821
  Serious: Yes (Hospitalization)
  Sender: FDA-Public Use
  Company Number: JP-PFIZER INC-2013163353

PATIENT
  Age: 89 Year
  Sex: Female
  Weight: 39 kg

DRUGS (10)
  1. CRIZOTINIB [Suspect]
     Active Substance: CRIZOTINIB
     Dosage: 250 MG, 2X/DAY
     Route: 048
     Dates: start: 20130107, end: 20130218
  2. ACINON [Concomitant]
     Active Substance: NIZATIDINE
     Dosage: 150 MG, AS NEEDED
     Route: 048
     Dates: start: 20121221
  3. NASEA OD [Concomitant]
     Dosage: 0.1 MG, AS NEEDED
     Route: 048
     Dates: start: 20121217, end: 20121223
  4. NASEA OD [Concomitant]
     Dosage: 0.1 MG, AS NEEDED
     Route: 048
     Dates: start: 20130107
  5. MUCOSOLVAN [Concomitant]
     Active Substance: AMBROXOL\CLENBUTEROL
     Dosage: 15 MG, 2X/DAY
     Route: 048
     Dates: start: 20121221
  6. ARICEPT [Concomitant]
     Active Substance: DONEPEZIL HYDROCHLORIDE
     Dosage: 5 MG, 1X/DAY
     Route: 048
     Dates: start: 20121221
  7. MAXIPIME [Concomitant]
     Active Substance: CEFEPIME HYDROCHLORIDE
     Dosage: 1 G, 2X/DAY
     Route: 042
     Dates: start: 20121219, end: 20121220
  8. CRIZOTINIB [Suspect]
     Active Substance: CRIZOTINIB
     Indication: NON-SMALL CELL LUNG CANCER
     Dosage: 250 MG, 2X/DAY
     Route: 048
     Dates: start: 20121218, end: 20121223
  9. NU LOTAN [Concomitant]
     Active Substance: LOSARTAN
     Dosage: 50 MG, 1X/DAY
     Route: 048
     Dates: start: 20121221
  10. MEROPEN [Concomitant]
     Active Substance: MEROPENEM
     Dosage: 0.5 G, 3X/DAY
     Route: 042
     Dates: start: 20121221, end: 20121228

REACTIONS (3)
  - Infective exacerbation of bronchiectasis [Recovering/Resolving]
  - Infective exacerbation of bronchiectasis [Recovering/Resolving]
  - Infective exacerbation of bronchiectasis [Recovering/Resolving]

NARRATIVE: CASE EVENT DATE: 20121224
